FAERS Safety Report 7517870-0 (Version None)
Quarter: 2011Q2

REPORT INFORMATION
  Report Type: 
  Country: None (occurrence: None)
  Receive Date: 20110526
  Receipt Date: 20110526
  Transmission Date: 20111010
  Serious: No
  Sender: FDA-Public Use
  Company Number: None

PATIENT
  Sex: Female
  Weight: 44.4525 kg

DRUGS (4)
  1. LORCET-HD [Suspect]
     Indication: OSTEOPOROSIS
     Dosage: LORCET (+) ONE BID
     Dates: start: 20110413
  2. LORCET-HD [Suspect]
     Indication: COMPRESSION FRACTURE
     Dosage: LORCET (+) ONE BID
     Dates: start: 20110413
  3. LORCET-HD [Suspect]
     Indication: OSTEOPOROSIS
     Dosage: LORCET (+) ONE BID
     Dates: start: 20110221
  4. LORCET-HD [Suspect]
     Indication: COMPRESSION FRACTURE
     Dosage: LORCET (+) ONE BID
     Dates: start: 20110221

REACTIONS (7)
  - RASH [None]
  - HEART RATE INCREASED [None]
  - NAUSEA [None]
  - DIZZINESS [None]
  - PRODUCT SUBSTITUTION ISSUE [None]
  - TREMOR [None]
  - PRURITUS [None]
